FAERS Safety Report 26013133 (Version 3)
Quarter: 2025Q4

REPORT INFORMATION
  Report Type: Spontaneous
  Country: JP (occurrence: JP)
  Receive Date: 20251107
  Receipt Date: 20251128
  Transmission Date: 20260118
  Serious: Yes (Hospitalization)
  Sender: ALEXION PHARMACEUTICALS
  Company Number: JP-ASTRAZENECA-202510JPN032238JP

PATIENT
  Age: 50 Year
  Sex: Male

DRUGS (9)
  1. DAPAGLIFLOZIN [Suspect]
     Active Substance: DAPAGLIFLOZIN
     Indication: Cardiac failure
     Dosage: 10 MILLIGRAM, QD
     Route: 065
  2. DAPAGLIFLOZIN [Suspect]
     Active Substance: DAPAGLIFLOZIN
     Dosage: 5 MILLIGRAM, QD
     Route: 065
  3. DOBUTAMINE [Concomitant]
     Active Substance: DOBUTAMINE HYDROCHLORIDE
     Dosage: 3 ?G/KG/MINUTE
  4. HEPARIN [Concomitant]
     Active Substance: HEPARIN SODIUM
  5. WARFARIN [Concomitant]
     Active Substance: WARFARIN
  6. SACUBITRIL [Concomitant]
     Active Substance: SACUBITRIL
     Route: 065
  7. VALSARTAN [Concomitant]
     Active Substance: VALSARTAN
     Route: 065
  8. CARVEDILOL [Concomitant]
     Active Substance: CARVEDILOL
  9. PIMOBENDAN [Concomitant]
     Active Substance: PIMOBENDAN
     Route: 065

REACTIONS (5)
  - Cardiac failure acute [Unknown]
  - Cardiac ventricular thrombosis [Unknown]
  - Insomnia [Unknown]
  - Brain natriuretic peptide decreased [Unknown]
  - Hypoperfusion [Unknown]
